FAERS Safety Report 17699094 (Version 1)
Quarter: 2020Q2

REPORT INFORMATION
  Report Type: Spontaneous
  Country: US (occurrence: US)
  Receive Date: 20200422
  Receipt Date: 20200422
  Transmission Date: 20200714
  Serious: No
  Sender: FDA-Public Use
  Company Number: None

PATIENT
  Age: 36 Year
  Sex: Female
  Weight: 108 kg

DRUGS (1)
  1. H2O2 FOOD GRADE HYDROGEN PEROXIDE 3% [Suspect]
     Active Substance: HYDROGEN PEROXIDE
     Indication: SUPPLEMENTATION THERAPY
     Dates: start: 20180620, end: 20180701

REACTIONS (5)
  - Manufacturing laboratory analytical testing issue [None]
  - Product quality issue [None]
  - Manufacturing product shipping issue [None]
  - Crime [None]
  - Dental caries [None]

NARRATIVE: CASE EVENT DATE: 20180630
